FAERS Safety Report 5190290-2 (Version None)
Quarter: 2006Q4

REPORT INFORMATION
  Report Type: 
  Country: None (occurrence: None)
  Receive Date: 20061222
  Receipt Date: 20061212
  Transmission Date: 20070319
  Serious: Yes (Other)
  Sender: FDA-Public Use
  Company Number: PHEH2006US15168

PATIENT
  Age: 70 Year
  Sex: Female
  Weight: 73.015 kg

DRUGS (12)
  1. MELPHALAN [Concomitant]
     Dosage: 16MG X4D Q6WKS
     Dates: start: 20060523
  2. MELPHALAN [Concomitant]
     Dosage: 16MG X4D Q6WK
     Dates: start: 19990702, end: 20001110
  3. PREDNISONE TAB [Concomitant]
     Dosage: 100MG X4D Q6WKS
     Dates: start: 20060523
  4. PREDNISONE TAB [Concomitant]
     Dosage: 100MG X4D Q6WK
     Dates: start: 19990702, end: 20001110
  5. ATIVAN [Concomitant]
     Indication: RESTLESSNESS
     Dosage: 1MG Q6H PRN
     Dates: start: 20000401
  6. OXYCONTIN [Concomitant]
     Indication: BONE PAIN
     Dosage: 20MG BID
     Dates: start: 19990701
  7. LISINOPRIL [Concomitant]
     Indication: HYPERTENSION
     Dosage: UNK QD
  8. TOPROL-XL [Concomitant]
  9. ZOMETA [Suspect]
     Indication: MULTIPLE MYELOMA
     Dosage: 4MG Q4WK
     Route: 042
     Dates: start: 20050111, end: 20061017
  10. ZOMETA [Suspect]
     Dosage: 4MG Q4WK
     Route: 042
     Dates: start: 20020402, end: 20031230
  11. AREDIA [Suspect]
     Indication: MULTIPLE MYELOMA
     Dosage: 90MG QMO
     Dates: start: 19990624, end: 20020304
  12. AREDIA [Suspect]
     Dosage: 90MG QMO
     Dates: start: 20040203, end: 20050111

REACTIONS (7)
  - BONE DISORDER [None]
  - GINGIVAL PAIN [None]
  - GINGIVAL SWELLING [None]
  - HYPOTRICHOSIS [None]
  - OSTEOMYELITIS [None]
  - OSTEONECROSIS [None]
  - PURULENT DISCHARGE [None]
